FAERS Safety Report 13048401 (Version 1)
Quarter: 2016Q4

REPORT INFORMATION
  Report Type: Spontaneous
  Country: US (occurrence: US)
  Receive Date: 20161220
  Receipt Date: 20161220
  Transmission Date: 20170207
  Serious: No
  Sender: FDA-Public Use
  Company Number: None

PATIENT
  Age: 31 Year
  Sex: Female
  Weight: 67.5 kg

DRUGS (7)
  1. GARLIC. [Concomitant]
     Active Substance: GARLIC
  2. TURMERIC [Concomitant]
     Active Substance: TURMERIC
  3. BOTOX [Suspect]
     Active Substance: ONABOTULINUMTOXINA
     Indication: SKIN WRINKLING
     Route: 030
     Dates: start: 20120101, end: 20161219
  4. MULTIVITAMIN [Concomitant]
     Active Substance: VITAMINS
  5. IRON [Concomitant]
     Active Substance: IRON
  6. B VITAMIN [Concomitant]
  7. PROBIOTICS [Concomitant]
     Active Substance: PROBIOTICS NOS

REACTIONS (17)
  - Nausea [None]
  - Headache [None]
  - Fatigue [None]
  - Anxiety [None]
  - Pain [None]
  - Arthralgia [None]
  - Malaise [None]
  - Dizziness [None]
  - Panic attack [None]
  - Crying [None]
  - Abdominal discomfort [None]
  - Eye pain [None]
  - Emotional disorder [None]
  - Pain in extremity [None]
  - Feeling abnormal [None]
  - Dry eye [None]
  - Dysstasia [None]

NARRATIVE: CASE EVENT DATE: 20161219
